FAERS Safety Report 24832467 (Version 2)
Quarter: 2025Q1

REPORT INFORMATION
  Report Type: Spontaneous
  Country: US (occurrence: US)
  Receive Date: 20250110
  Receipt Date: 20250128
  Transmission Date: 20250409
  Serious: No
  Sender: MERCK
  Company Number: US-009507513-2501USA000622

PATIENT
  Age: 79 Year
  Sex: Female

DRUGS (4)
  1. ZOLINZA [Suspect]
     Active Substance: VORINOSTAT
     Indication: Cutaneous T-cell lymphoma
     Dosage: 4 TABLETS, DAILY (QD)
     Route: 048
     Dates: start: 202412, end: 202501
  2. ZOLINZA [Suspect]
     Active Substance: VORINOSTAT
     Dosage: 400 MILLIGRAM, QD (4 TABLETS DAILY)
     Route: 048
     Dates: start: 20250118
  3. OMEPRAZOLE [Concomitant]
     Active Substance: OMEPRAZOLE
     Indication: Dyspepsia
     Dosage: 40 MILLIGRAM, QD
     Route: 048
  4. ATORVASTATIN [Concomitant]
     Active Substance: ATORVASTATIN
     Indication: Blood cholesterol increased
     Dosage: UNK, QD

REACTIONS (8)
  - Diarrhoea [Unknown]
  - Dry mouth [Unknown]
  - Bronchitis [Unknown]
  - Intentional product misuse [Unknown]
  - Incorrect dose administered [Unknown]
  - Incorrect dose administered [Unknown]
  - Product dose omission issue [Unknown]
  - Product use issue [Unknown]

NARRATIVE: CASE EVENT DATE: 20250101
